FAERS Safety Report 7086126-5 (Version None)
Quarter: 2010Q4

REPORT INFORMATION
  Report Type: 
  Country: None (occurrence: None)
  Receive Date: 20101105
  Receipt Date: 20101028
  Transmission Date: 20110411
  Serious: Yes (Hospitalization)
  Sender: FDA-Public Use
  Company Number: B0681676A

PATIENT
  Sex: Female

DRUGS (9)
  1. AUGMENTIN '125' [Suspect]
     Dosage: 1G THREE TIMES PER DAY
     Route: 048
     Dates: start: 20101003, end: 20101005
  2. LASIX [Concomitant]
     Route: 050
     Dates: start: 20101003
  3. NEXIUM [Concomitant]
     Dosage: 40MG PER DAY
     Route: 048
  4. GLIMEPIRIDE [Concomitant]
     Dosage: 1MG PER DAY
     Route: 048
     Dates: end: 20101004
  5. HEMIGOXINE NATIVELLE [Concomitant]
     Dosage: .125MG PER DAY
     Route: 048
     Dates: end: 20101006
  6. BISOPROLOL [Concomitant]
     Dosage: 10MG TWICE PER DAY
     Route: 048
  7. IKOREL [Concomitant]
     Dosage: 5MG TWICE PER DAY
     Route: 048
  8. PREVISCAN [Concomitant]
     Dosage: 10MG PER DAY
     Route: 048
  9. COAPROVEL [Concomitant]
     Dosage: 1UNIT PER DAY
     Route: 048

REACTIONS (4)
  - ANAEMIA [None]
  - LEUKOPENIA [None]
  - RED BLOOD CELL COUNT DECREASED [None]
  - THROMBOCYTOPENIA [None]
